FAERS Safety Report 7250132-8 (Version None)
Quarter: 2011Q1

REPORT INFORMATION
  Report Type: 
  Country: None (occurrence: None)
  Receive Date: 20110128
  Receipt Date: 20110103
  Transmission Date: 20110831
  Serious: Yes (Death)
  Sender: FDA-Public Use
  Company Number: US-BAYER-2011-001836

PATIENT
  Sex: Female

DRUGS (6)
  1. MONTELUKAST SODIUM [Suspect]
     Route: 048
  2. TELMISARTAN + HYDROCHLOROTHIAZIDE [BAYER] [Suspect]
     Route: 048
  3. ACETAMINOPHEN AND HYDROCODONE BITARTRATE [Suspect]
     Route: 048
  4. QUETIAPINE [Suspect]
     Route: 048
  5. DULOXETINE [Suspect]
     Route: 048
  6. NIFEDIPINE [Suspect]
     Route: 048

REACTIONS (1)
  - TOXICITY TO VARIOUS AGENTS [None]
